FAERS Safety Report 20662930 (Version 1)
Quarter: 2022Q2

REPORT INFORMATION
  Report Type: Spontaneous
  Country: GB (occurrence: GB)
  Receive Date: 20220401
  Receipt Date: 20220401
  Transmission Date: 20220721
  Serious: Yes (Other)
  Sender: FDA-Public Use
  Company Number: None

PATIENT
  Age: 76 Year
  Sex: Male
  Weight: 95 kg

DRUGS (22)
  1. DOXYCYCLINE [Suspect]
     Active Substance: DOXYCYCLINE
     Indication: Product used for unknown indication
     Dosage: 100 MILLIGRAM
     Dates: start: 20220328
  2. DOXYCYCLINE [Suspect]
     Active Substance: DOXYCYCLINE
     Indication: Cellulitis
     Dosage: 2 DOSAGE FORM, QD (TAKE TWO TABLETS ONCE PER DAY FOR 14 DAYS)
     Dates: start: 20220318
  3. ATORVASTATIN [Concomitant]
     Active Substance: ATORVASTATIN
     Dosage: 1 DOSAGE FORM, QD (TAKE ONE DAILY)
     Dates: start: 20210614
  4. CARVEDILOL [Concomitant]
     Active Substance: CARVEDILOL
     Dosage: 1 DOSAGE FORM, TID (THREE TIMES A DAY)
     Dates: start: 20210614
  5. CLARITHROMYCIN [Concomitant]
     Active Substance: CLARITHROMYCIN
     Dosage: 1 DOSAGE FORM, BID (TAKE ONE EVERY 12 HRS)
     Dates: start: 20220223, end: 20220302
  6. CLOPIDOGREL [Concomitant]
     Active Substance: CLOPIDOGREL BISULFATE
     Dosage: 1 DOSAGE FORM, QD (TAKE ONE ONCE DAILY)
     Dates: start: 20210614
  7. COLCHICINE [Concomitant]
     Active Substance: COLCHICINE
     Dosage: 1 DOSAGE FORM, QD (ONCE DAILY OMIT STATIN WHILST TAKING)
     Dates: start: 20220307
  8. DAPAGLIFLOZIN [Concomitant]
     Active Substance: DAPAGLIFLOZIN
     Dosage: 1 DOSAGE FORM, QD (TAKE ONE DAILY)
     Dates: start: 20211201
  9. DIGOXIN [Concomitant]
     Active Substance: DIGOXIN
     Dosage: 1 DOSAGE FORM, QD (ONE TO BE TAKEN DAILY)
     Dates: start: 20210614
  10. FEXOFENADINE [Concomitant]
     Active Substance: FEXOFENADINE HYDROCHLORIDE
     Dosage: 1 DOSAGE FORM, QD (ONCE DAILY UNTIL LIP SWELLING SETTLES)
     Dates: start: 20220328
  11. FUROSEMIDE [Concomitant]
     Active Substance: FUROSEMIDE
     Dosage: 120 MILLIGRAM, QD (80MG MANE 40MG LUNCHTIME)
     Dates: start: 20210614
  12. FUSIDIC ACID [Concomitant]
     Active Substance: FUSIDIC ACID
     Dosage: APPLY 3 TO 4 TIMES A DAY FOR 7 DAYS TO LOWER LIP
     Dates: start: 20220328
  13. NITROGLYCERIN [Concomitant]
     Active Substance: NITROGLYCERIN
     Dosage: 1 DOSAGE FORM, PRN (ONE PUFF AS NEEDED)
     Dates: start: 20210614
  14. LANSOPRAZOLE [Concomitant]
     Active Substance: LANSOPRAZOLE
     Dosage: 1200 DOSAGE FORM, QD (ONE TO BE TAKEN EACH MORNING)
     Dates: start: 20210614
  15. LORATADINE [Concomitant]
     Active Substance: LORATADINE
     Dosage: 1 DOSAGE FORM, QD (TAKE ONE TABLET DAILY INCREASING UP TO A MAXIMU)
     Dates: start: 20210614
  16. MENTHOL [Concomitant]
     Active Substance: MENTHOL
     Dosage: UNK, PRN (APPLY AS NEEDED)
     Dates: start: 20210614
  17. ISOSORBIDE MONONITRATE [Concomitant]
     Active Substance: ISOSORBIDE MONONITRATE
     Dosage: 1 DOSAGE FORM, QD (TAKE ONE EACH MORNING)
     Dates: start: 20210614
  18. RANOLAZINE [Concomitant]
     Active Substance: RANOLAZINE
     Dosage: 1 DOSAGE FORM, BID (ONE TO BE TAKEN TWICE A DAY)
     Dates: start: 20210614
  19. SACUBITRIL [Concomitant]
     Active Substance: SACUBITRIL
     Dosage: 1 DOSAGE FORM, BID (ONE TABLET TWICE A DAY)
     Dates: start: 20210614
  20. SPIRONOLACTONE [Concomitant]
     Active Substance: SPIRONOLACTONE
     Dosage: 1 DOSAGE FORM, QD (ONE TO BE TAKEN DAILY)
     Dates: start: 20210614
  21. WARFARIN SODIUM [Concomitant]
     Active Substance: WARFARIN SODIUM
     Dosage: UNK (AS DIRECTED)
     Dates: start: 20210614
  22. MINERAL OIL\PARAFFIN [Concomitant]
     Active Substance: MINERAL OIL\PARAFFIN
     Indication: Ill-defined disorder
     Dosage: UNK (APPLY TO AFFECTED AREAS AND DRY SKIN TWICE DAIL)
     Dates: start: 20201217

REACTIONS (2)
  - Lip swelling [Unknown]
  - Angioedema [Not Recovered/Not Resolved]

NARRATIVE: CASE EVENT DATE: 20220328
